FAERS Safety Report 18263872 (Version 3)
Quarter: 2020Q4

REPORT INFORMATION
  Report Type: Report from Study
  Country: US (occurrence: US)
  Receive Date: 20200914
  Receipt Date: 20201029
  Transmission Date: 20210113
  Serious: Yes (Other)
  Sender: FDA-Public Use
  Company Number: US-009507513-2009USA002754

PATIENT
  Age: 17 Year
  Sex: Female
  Weight: 83.86 kg

DRUGS (2)
  1. IMPLANON [Suspect]
     Active Substance: ETONOGESTREL
     Indication: CONTRACEPTION
     Dosage: 1 IMPLANT, EVERY 3 YEARS, IN ARM
     Route: 059
     Dates: start: 20200901
  2. NEXPLANON [Suspect]
     Active Substance: ETONOGESTREL
     Indication: CONTRACEPTION
     Dosage: 1 IMPLANT, EVERY 3 YEARS, RIGHT UPPER ARM
     Route: 023
     Dates: start: 20200901, end: 20200910

REACTIONS (8)
  - Asthenia [Unknown]
  - Device use issue [Recovered/Resolved]
  - Depressed mood [Unknown]
  - Product quality issue [Unknown]
  - Complication associated with device [Recovered/Resolved]
  - Complication of device insertion [Recovered/Resolved]
  - Overdose [Unknown]
  - Incorrect route of product administration [Unknown]

NARRATIVE: CASE EVENT DATE: 20200901
